FAERS Safety Report 4277721-7 (Version None)
Quarter: 2004Q1

REPORT INFORMATION
  Report Type: 
  Country: None (occurrence: None)
  Receive Date: 20040121
  Receipt Date: 20040113
  Transmission Date: 20041129
  Serious: Yes (Other)
  Sender: FDA-Public Use
  Company Number: 200310584BFR

PATIENT
  Age: 64 Year
  Sex: Male
  Weight: 98 kg

DRUGS (3)
  1. LEVITRA [Suspect]
     Indication: ERECTILE DYSFUNCTION
     Dosage: OW
     Dates: start: 20030301, end: 20031107
  2. ELISOR [Concomitant]
  3. LIPANTHYL [Concomitant]

REACTIONS (3)
  - DRUG ERUPTION [None]
  - LUPUS-LIKE SYNDROME [None]
  - TOXIC SKIN ERUPTION [None]
